FAERS Safety Report 4816217-8 (Version None)
Quarter: 2005Q4

REPORT INFORMATION
  Report Type: 
  Country: None (occurrence: None)
  Receive Date: 20051026
  Receipt Date: 20051004
  Transmission Date: 20060501
  Serious: Yes (Hospitalization)
  Sender: FDA-Public Use
  Company Number: 418337

PATIENT
  Age: 46 Year
  Sex: Male

DRUGS (1)
  1. ERLOTINIB (ERLOTINIB) [Suspect]
     Indication: NON-SMALL CELL LUNG CANCER
     Dosage: 150 MG 1 X PER DAY / ORAL
     Route: 048
     Dates: start: 20050903

REACTIONS (6)
  - COUGH [None]
  - LETHARGY [None]
  - PLEURAL EFFUSION [None]
  - PLEURITIC PAIN [None]
  - PYREXIA [None]
  - RASH GENERALISED [None]
